FAERS Safety Report 18176286 (Version 1)
Quarter: 2020Q3

REPORT INFORMATION
  Report Type: Spontaneous
  Country: DE (occurrence: DE)
  Receive Date: 20200820
  Receipt Date: 20200820
  Transmission Date: 20201103
  Serious: Yes (Hospitalization, Other)
  Sender: FDA-Public Use
  Company Number: DE-MYLANLABS-2020M1071477

PATIENT
  Age: 75 Year
  Sex: Female

DRUGS (9)
  1. CLOPIDOGREL [Suspect]
     Active Substance: CLOPIDOGREL BISULFATE
     Indication: PRODUCT USED FOR UNKNOWN INDICATION
     Dosage: 75 MILLIGRAM, QD (75 MG, 0?1?0?0)
  2. METOPROLOL. [Concomitant]
     Active Substance: METOPROLOL
     Dosage: 95 MILLIGRAM, QD (95 MG, 1?0?0?0)
  3. JANUVIA [Concomitant]
     Active Substance: SITAGLIPTIN PHOSPHATE
     Dosage: 100 MILLIGRAM, QD (100 MG, 1?0?0?0)
  4. LANTUS [Concomitant]
     Active Substance: INSULIN GLARGINE
     Dosage: 45 INTERNATIONAL UNIT, QD (45 IE, 0?0?0?1)
  5. PANTOPRAZOL                        /01263201/ [Concomitant]
     Active Substance: PANTOPRAZOLE
     Dosage: 40 MILLIGRAM, QD (40 MG, 1?0?0?0)
  6. HUMALOG [Concomitant]
     Active Substance: INSULIN LISPRO
     Dosage: NK MG, NACH PATIENTENSCHEMA
  7. ACETYLSALICYLIC ACID [Suspect]
     Active Substance: ASPIRIN
     Indication: PRODUCT USED FOR UNKNOWN INDICATION
     Dosage: 100 MILLIGRAM (100 MG, DISCONTINUED)
  8. TORASEMID [Concomitant]
     Active Substance: TORSEMIDE
     Dosage: 20 MILLIGRAM, BID (20 MG, 1?1?0?0)
  9. SIMVASTATIN. [Concomitant]
     Active Substance: SIMVASTATIN
     Dosage: 40 MILLIGRAM, QD (40 MG, 0?0?1?0)

REACTIONS (4)
  - General physical health deterioration [Unknown]
  - Internal haemorrhage [Unknown]
  - Haematochezia [Unknown]
  - Anaemia [Unknown]
